FAERS Safety Report 8007904-1 (Version None)
Quarter: 2011Q4

REPORT INFORMATION
  Report Type: 
  Country: None (occurrence: None)
  Receive Date: 20111227
  Receipt Date: 20111217
  Transmission Date: 20120403
  Serious: Yes (Hospitalization, Other)
  Sender: FDA-Public Use
  Company Number: US-BAYER-2011-036218

PATIENT
  Age: 21 Year
  Sex: Female
  Weight: 136 kg

DRUGS (9)
  1. HERBALIFE PRODUCTS [Concomitant]
     Indication: SUPPLEMENTATION THERAPY
     Dosage: UNK UNK, QD
     Route: 048
     Dates: start: 20090701, end: 20090804
  2. ORTHO TRI-CYCLEN [Concomitant]
  3. NAPROXEN [Concomitant]
     Indication: BACK PAIN
     Dosage: UNK UNK, BID
     Route: 048
     Dates: start: 20090625, end: 20090701
  4. MICRONOR [Concomitant]
     Dosage: UNK
     Dates: start: 20090810
  5. RANITIDINE [Concomitant]
     Indication: DYSPEPSIA
     Dosage: UNK UNK, Q1MON
     Route: 048
     Dates: start: 20080101
  6. YAZ [Suspect]
     Indication: CONTRACEPTION
     Dosage: UNK
     Dates: start: 20080401, end: 20090804
  7. ROLAIDS [Concomitant]
     Indication: DYSPEPSIA
     Dosage: UNK UNK, PRN
     Route: 048
     Dates: start: 20020101
  8. IBUPROFEN (ADVIL) [Concomitant]
     Indication: HEADACHE
     Dosage: UNK UNK, PRN
     Route: 048
     Dates: start: 19920101
  9. MULTI-VITAMIN [Concomitant]
     Indication: SUPPLEMENTATION THERAPY
     Dosage: UNK UNK, QD
     Route: 048
     Dates: start: 20000101

REACTIONS (8)
  - ANXIETY [None]
  - ABORTION SPONTANEOUS [None]
  - GENERAL PHYSICAL HEALTH DETERIORATION [None]
  - PULMONARY EMBOLISM [None]
  - EMOTIONAL DISTRESS [None]
  - INTERVERTEBRAL DISC PROTRUSION [None]
  - DEEP VEIN THROMBOSIS [None]
  - PAIN [None]
